FAERS Safety Report 8460729 (Version 2)
Quarter: 2013Q1

REPORT INFORMATION
  Report Type: Spontaneous
  Country: IT (occurrence: IT)
  Receive Date: 20120315
  Receipt Date: 20130318
  Transmission Date: 20140127
  Serious: Yes (Life-Threatening)
  Sender: FDA-Public Use
  Company Number: IT-TEVA-327882ISR

PATIENT
  Age: 53 Year
  Sex: Male

DRUGS (3)
  1. FLUOROURACIL [Suspect]
     Indication: RECTAL CANCER
     Dosage: 3000 MILLIGRAM DAILY;
     Route: 042
     Dates: start: 20120114, end: 20120115
  2. CAMPO [Suspect]
     Indication: RECTAL CANCER
     Dosage: 340 MILLIGRAM DAILY;
     Route: 042
     Dates: start: 20120114, end: 20120115
  3. ERBITUX [Suspect]
     Indication: RECTAL CANCER
     Dosage: 470 MILLIGRAM DAILY;
     Dates: start: 20120114, end: 20120115

REACTIONS (1)
  - Apnoea [Recovered/Resolved]
